FAERS Safety Report 25347001 (Version 1)
Quarter: 2025Q2

REPORT INFORMATION
  Report Type: Spontaneous
  Country: US (occurrence: US)
  Receive Date: 20250522
  Receipt Date: 20250522
  Transmission Date: 20250716
  Serious: Yes (Other)
  Sender: DR REDDYS
  Company Number: US-DRL-USA-USA/2025/05/007072

PATIENT
  Sex: Female

DRUGS (5)
  1. ZIPRASIDONE [Suspect]
     Active Substance: ZIPRASIDONE
     Indication: Schizophrenia
     Route: 065
  2. ZIPRASIDONE [Suspect]
     Active Substance: ZIPRASIDONE
     Route: 065
  3. ZIPRASIDONE [Suspect]
     Active Substance: ZIPRASIDONE
     Dosage: AT NIGHT
     Route: 065
     Dates: start: 20241110
  4. KLONOPIN [Concomitant]
     Active Substance: CLONAZEPAM
     Route: 065
  5. ADDERALL [Concomitant]
     Active Substance: AMPHETAMINE ASPARTATE\AMPHETAMINE SULFATE\DEXTROAMPHETAMINE SACCHARATE\DEXTROAMPHETAMINE SULFATE
     Route: 065

REACTIONS (9)
  - Loss of consciousness [Unknown]
  - Drooling [Unknown]
  - Paranoia [Unknown]
  - Withdrawal syndrome [Not Recovered/Not Resolved]
  - Nervous system disorder [Unknown]
  - Hot flush [Not Recovered/Not Resolved]
  - Rhinorrhoea [Unknown]
  - Mood altered [Not Recovered/Not Resolved]
  - Hyperhidrosis [Unknown]
